FAERS Safety Report 23936506 (Version 1)
Quarter: 2024Q2

REPORT INFORMATION
  Report Type: Spontaneous
  Country: ES (occurrence: ES)
  Receive Date: 20240604
  Receipt Date: 20240604
  Transmission Date: 20240716
  Serious: Yes (Other)
  Sender: FDA-Public Use
  Company Number: ES-AUROBINDO-AUR-APL-2024-025896

PATIENT
  Sex: Female

DRUGS (3)
  1. RASAGILINE [Interacting]
     Active Substance: RASAGILINE\RASAGILINE MESYLATE
     Indication: Parkinson^s disease
     Dosage: UNK
     Route: 065
  2. VENLAFAXINE [Interacting]
     Active Substance: VENLAFAXINE HYDROCHLORIDE
     Indication: Antidepressant therapy
     Dosage: UNK
     Route: 065
  3. VENLAFAXINE [Interacting]
     Active Substance: VENLAFAXINE HYDROCHLORIDE
     Indication: Depression

REACTIONS (3)
  - Serotonin syndrome [Unknown]
  - Drug interaction [Unknown]
  - Confusional state [Unknown]
